FAERS Safety Report 8239190-1 (Version None)
Quarter: 2012Q1

REPORT INFORMATION
  Report Type: 
  Country: None (occurrence: None)
  Receive Date: 20120328
  Receipt Date: 20120321
  Transmission Date: 20120608
  Serious: No
  Sender: FDA-Public Use
  Company Number: US-BIOGENIDEC-2012BI009248

PATIENT
  Age: 65 Year
  Sex: Female

DRUGS (1)
  1. TYSABRI [Suspect]
     Indication: MULTIPLE SCLEROSIS
     Route: 042
     Dates: start: 20120112

REACTIONS (13)
  - ABDOMINAL DISTENSION [None]
  - PARAESTHESIA [None]
  - MOBILITY DECREASED [None]
  - SENSATION OF HEAVINESS [None]
  - HYPOAESTHESIA [None]
  - DYSPNOEA [None]
  - NERVOUSNESS [None]
  - VISUAL IMPAIRMENT [None]
  - SWELLING [None]
  - FEAR [None]
  - PAIN IN EXTREMITY [None]
  - STRESS [None]
  - DRUG INEFFECTIVE [None]
